FAERS Safety Report 7009893-5 (Version None)
Quarter: 2010Q3

REPORT INFORMATION
  Report Type: 
  Country: None (occurrence: None)
  Receive Date: 20100903
  Receipt Date: 20100817
  Transmission Date: 20110219
  Serious: No
  Sender: FDA-Public Use
  Company Number: 2010-00637

PATIENT
  Age: 33 Year
  Sex: Male
  Weight: 92.9874 kg

DRUGS (1)
  1. ZICAM COLD REMEDY NASAL GEL [Suspect]
     Indication: NASOPHARYNGITIS
     Dosage: 1 DOSE
     Dates: start: 20060101, end: 20060101

REACTIONS (3)
  - ANOSMIA [None]
  - HYPOGEUSIA [None]
  - NASAL DISCOMFORT [None]
